FAERS Safety Report 10253119 (Version 1)
Quarter: 2014Q2

REPORT INFORMATION
  Report Type: Spontaneous
  Country: IT (occurrence: IT)
  Receive Date: 20140623
  Receipt Date: 20140623
  Transmission Date: 20141212
  Serious: Yes (Hospitalization)
  Sender: FDA-Public Use
  Company Number: IT-TEVA-488981ISR

PATIENT
  Age: 41 Year
  Sex: Female

DRUGS (4)
  1. RIBAVIRIN [Suspect]
     Indication: HEPATITIS C
     Dosage: 1000 MG DAILY
     Route: 048
     Dates: start: 20131111, end: 20131124
  2. RIBAVIRIN [Suspect]
     Dosage: 800 MG DAILY
     Route: 048
     Dates: start: 20131124, end: 20140610
  3. VICTRELIS - MERCK SHARP AND DOHME LIMITED [Suspect]
     Indication: HEPATITIS C
     Dosage: 12 DF DAILY
     Route: 048
     Dates: start: 20131224, end: 20140610
  4. PEGINTRON - 100 MCG POLVERE E SOLVENTE PER SOLUZIONE INIETTABILE [Suspect]
     Indication: HEPATITIS C
     Dosage: 100 UG WEEKLY
     Route: 058
     Dates: start: 20131111, end: 20140610

REACTIONS (1)
  - Thrombocytopenia [Not Recovered/Not Resolved]
